FAERS Safety Report 4315912-7 (Version None)
Quarter: 2004Q1

REPORT INFORMATION
  Report Type: 
  Country: None (occurrence: None)
  Receive Date: 20040310
  Receipt Date: 20040302
  Transmission Date: 20041129
  Serious: Yes (Other)
  Sender: FDA-Public Use
  Company Number: CA-JNJFOC-20031105267

PATIENT
  Age: 63 Year
  Sex: Female
  Weight: 63 kg

DRUGS (6)
  1. DOXORUBICIN HCL [Suspect]
     Indication: BREAST CANCER
     Dosage: 87 MG/M2, INTRAVENOUS
     Route: 042
     Dates: start: 20030505, end: 20030904
  2. HERCEPTIN [Suspect]
     Indication: BREAST CANCER
     Dosage: 126 MG/KG INTRAVENOUS
     Route: 042
     Dates: start: 20030506, end: 20031106
  3. IMOVANE (ZOPICLONE) [Concomitant]
  4. TYLENOL W/CODEINE (PANADEINE CO) [Concomitant]
  5. CLODRONATE DISODIUM (CLODRONATE DISODIUM) [Concomitant]
  6. PRODIEM PLAIN (PSYLLIUM HYDROPHILIC MUCILLOID) [Concomitant]

REACTIONS (5)
  - AORTIC VALVE SCLEROSIS [None]
  - DYSPHAGIA [None]
  - EJECTION FRACTION DECREASED [None]
  - MITRAL VALVE DISEASE [None]
  - TRANSIENT ISCHAEMIC ATTACK [None]
